FAERS Safety Report 9025332 (Version 1)
Quarter: 2012Q4

REPORT INFORMATION
  Report Type: 
  Country: FR (occurrence: FR)
  Receive Date: 20121211
  Receipt Date: 20121211
  Transmission Date: 20130627
  Serious: Yes (Other)
  Sender: FDA-Public Use
  Company Number: PHHY2012FR113182

PATIENT
  Sex: Male

DRUGS (3)
  1. TASIGNA [Suspect]
     Dosage: 400 mg, BID
     Route: 048
     Dates: start: 20061010, end: 20080219
  2. TASIGNA [Suspect]
     Dosage: 400 mg, BID
     Route: 048
     Dates: start: 20080410, end: 20101021
  3. TASIGNA [Suspect]
     Dosage: 200 mg, BID
     Route: 048
     Dates: start: 20101021, end: 201211

REACTIONS (2)
  - Electrocardiogram abnormal [Unknown]
  - Myocardial infarction [Unknown]
